FAERS Safety Report 25105322 (Version 1)
Quarter: 2025Q1

REPORT INFORMATION
  Report Type: Spontaneous
  Country: US (occurrence: US)
  Receive Date: 20250321
  Receipt Date: 20250321
  Transmission Date: 20250408
  Serious: No
  Sender: ELI LILLY AND COMPANY
  Company Number: US-ELI_LILLY_AND_COMPANY-US202503013141

PATIENT
  Age: 74 Year
  Sex: Female

DRUGS (8)
  1. MOUNJARO [Suspect]
     Active Substance: TIRZEPATIDE
     Indication: Weight control
     Route: 058
     Dates: start: 20250204
  2. MOUNJARO [Suspect]
     Active Substance: TIRZEPATIDE
     Indication: Weight control
     Route: 058
     Dates: start: 20250204
  3. MOUNJARO [Suspect]
     Active Substance: TIRZEPATIDE
     Indication: Weight control
     Route: 058
     Dates: start: 20250204
  4. MOUNJARO [Suspect]
     Active Substance: TIRZEPATIDE
     Indication: Weight control
     Route: 058
     Dates: start: 20250204
  5. MOUNJARO [Suspect]
     Active Substance: TIRZEPATIDE
     Indication: Diabetes mellitus
  6. MOUNJARO [Suspect]
     Active Substance: TIRZEPATIDE
     Indication: Diabetes mellitus
  7. MOUNJARO [Suspect]
     Active Substance: TIRZEPATIDE
     Indication: Diabetes mellitus
  8. MOUNJARO [Suspect]
     Active Substance: TIRZEPATIDE
     Indication: Diabetes mellitus

REACTIONS (4)
  - Influenza [Unknown]
  - Urticaria [Recovered/Resolved]
  - Swelling face [Recovered/Resolved]
  - Lip swelling [Recovered/Resolved]

NARRATIVE: CASE EVENT DATE: 20250205
